FAERS Safety Report 4873370-8 (Version None)
Quarter: 2005Q4

REPORT INFORMATION
  Report Type: 
  Country: None (occurrence: None)
  Receive Date: 20051201
  Receipt Date: 20050708
  Transmission Date: 20060501
  Serious: No
  Sender: FDA-Public Use
  Company Number: 2005PV000338

PATIENT
  Age: 57 Year
  Sex: Female
  Weight: 104.3273 kg

DRUGS (12)
  1. BYETTA [Suspect]
     Indication: DIABETES MELLITUS NON-INSULIN-DEPENDENT
     Dosage: 5 UG; BID; SC
     Route: 058
     Dates: start: 20050701
  2. AMARYL [Concomitant]
  3. ACTOS [Concomitant]
  4. PRAVACHOL [Concomitant]
  5. LEVOXYL [Concomitant]
  6. MICARDIS HCT [Concomitant]
  7. METOPROLOL TARTRATE [Concomitant]
  8. COLESTID [Concomitant]
  9. ASPIRIN [Concomitant]
  10. ATKINS ESSENTIAL OILS [Concomitant]
  11. CALCIUM GLUCONATE [Concomitant]
  12. CENTRUM SILVER [Concomitant]

REACTIONS (5)
  - CONSTIPATION [None]
  - DRUG INEFFECTIVE [None]
  - HEADACHE [None]
  - HUNGER [None]
  - NAUSEA [None]
